FAERS Safety Report 13305829 (Version 1)
Quarter: 2017Q1

REPORT INFORMATION
  Report Type: Report from Study
  Country: US (occurrence: US)
  Receive Date: 20170308
  Receipt Date: 20170308
  Transmission Date: 20170428
  Serious: Yes (Hospitalization, Other)
  Sender: FDA-Public Use
  Company Number: US-GILEAD-2017-0260796

PATIENT
  Age: 57 Year
  Sex: Female

DRUGS (10)
  1. NEURONTIN [Concomitant]
     Active Substance: GABAPENTIN
  2. ULTRAM [Concomitant]
     Active Substance: TRAMADOL HYDROCHLORIDE
  3. PLAQUENIL                          /00072602/ [Concomitant]
     Active Substance: HYDROXYCHLOROQUINE DIPHOSPHATE
  4. LEVOTHYROXINE. [Concomitant]
     Active Substance: LEVOTHYROXINE
  5. CLONAZEPAM. [Concomitant]
     Active Substance: CLONAZEPAM
  6. PRILOSEC [Concomitant]
     Active Substance: OMEPRAZOLE MAGNESIUM
  7. REQUIP [Concomitant]
     Active Substance: ROPINIROLE HYDROCHLORIDE
  8. AMBRISENTAN [Suspect]
     Active Substance: AMBRISENTAN
     Indication: PULMONARY HYPERTENSION
     Dosage: 5 MG, QD
     Route: 065
     Dates: start: 201609
  9. PROMACTA [Concomitant]
     Active Substance: ELTROMBOPAG OLAMINE
  10. LASIX [Concomitant]
     Active Substance: FUROSEMIDE

REACTIONS (2)
  - Systemic lupus erythematosus [Recovered/Resolved]
  - Platelet count decreased [Recovered/Resolved]
